FAERS Safety Report 7015547-1 (Version None)
Quarter: 2010Q3

REPORT INFORMATION
  Report Type: 
  Country: None (occurrence: None)
  Receive Date: 20100923
  Receipt Date: 20100908
  Transmission Date: 20110219
  Serious: Yes (Hospitalization)
  Sender: FDA-Public Use
  Company Number: 2010SP048011

PATIENT
  Age: 17 Year
  Sex: Female

DRUGS (1)
  1. CELESTONE [Suspect]
     Indication: THREATENED LABOUR
     Dosage: 12 MG;ONCE;IM
     Route: 030
     Dates: start: 20100215, end: 20100215

REACTIONS (5)
  - ABDOMINAL PAIN LOWER [None]
  - DRUG EXPOSURE DURING PREGNANCY [None]
  - FATIGUE [None]
  - FOETAL HYPOKINESIA [None]
  - NAUSEA [None]
